FAERS Safety Report 4985779-2 (Version None)
Quarter: 2006Q2

REPORT INFORMATION
  Report Type: 
  Country: None (occurrence: None)
  Receive Date: 20060421
  Receipt Date: 20060331
  Transmission Date: 20061013
  Serious: Yes (Other)
  Sender: FDA-Public Use
  Company Number: ENT 2006-0050

PATIENT
  Age: 60 Year
  Sex: Male

DRUGS (4)
  1. COMTAN [Suspect]
     Indication: PARKINSON'S DISEASE
     Dosage: 600 MG (200 MG, 3 IN 1 D)
     Route: 048
     Dates: start: 20040704, end: 20040713
  2. MADOPAR [Concomitant]
  3. MADOPAR HBS [Concomitant]
  4. MIRAPEXIN [Concomitant]

REACTIONS (5)
  - BURNING SENSATION [None]
  - GLOSSODYNIA [None]
  - LIP PAIN [None]
  - MUCOSAL DISCOLOURATION [None]
  - STOMATITIS [None]
